FAERS Safety Report 4932466-2 (Version None)
Quarter: 2006Q1

REPORT INFORMATION
  Report Type: 
  Country: None (occurrence: None)
  Receive Date: 20060227
  Receipt Date: 20060215
  Transmission Date: 20060701
  Serious: Yes (Hospitalization)
  Sender: FDA-Public Use
  Company Number: TCI2006A00754

PATIENT
  Age: 80 Year
  Sex: Female

DRUGS (3)
  1. ACTOS [Suspect]
     Indication: DIABETES MELLITUS
     Dosage: 15 MG (15 MG, 1 D); PER ORAL
     Route: 048
     Dates: start: 20060208, end: 20060213
  2. AMARYL [Concomitant]
  3. KINEDAK (EPALRESTAT) [Concomitant]

REACTIONS (1)
  - INTERSTITIAL LUNG DISEASE [None]
